FAERS Safety Report 4965708-8 (Version None)
Quarter: 2006Q1

REPORT INFORMATION
  Report Type: 
  Country: None (occurrence: None)
  Receive Date: 20060331
  Receipt Date: 20060323
  Transmission Date: 20060701
  Serious: Yes (Other)
  Sender: FDA-Public Use
  Company Number: FR200603006189

PATIENT
  Sex: Male

DRUGS (1)
  1. ALMITA ( PEMETREXED ) VIAL [Suspect]
     Indication: LUNG NEOPLASM MALIGNANT
     Dosage: OTHER, INTRAVENOUS
     Route: 042

REACTIONS (2)
  - HEPATIC STEATOSIS [None]
  - SENSATION OF HEAVINESS [None]
